FAERS Safety Report 22982616 (Version 2)
Quarter: 2024Q3

REPORT INFORMATION
  Report Type: Report from Study
  Country: US (occurrence: US)
  Receive Date: 20230926
  Receipt Date: 20240921
  Transmission Date: 20241017
  Serious: Yes (Other)
  Sender: ABBVIE
  Company Number: US-ABBVIE-5420082

PATIENT
  Sex: Male

DRUGS (1)
  1. SKYRIZI [Suspect]
     Active Substance: RISANKIZUMAB-RZAA
     Indication: Psoriasis
     Route: 058
     Dates: start: 20210716

REACTIONS (13)
  - Testis cancer [Recovering/Resolving]
  - Back injury [Not Recovered/Not Resolved]
  - Exostosis [Unknown]
  - Hypoaesthesia [Unknown]
  - Psoriasis [Not Recovered/Not Resolved]
  - Intervertebral disc protrusion [Unknown]
  - Sneezing [Unknown]
  - Emotional disorder [Unknown]
  - Insomnia [Unknown]
  - Pain [Unknown]
  - Road traffic accident [Unknown]
  - Neoplasm malignant [Unknown]
  - Gait disturbance [Unknown]

NARRATIVE: CASE EVENT DATE: 20210101
